FAERS Safety Report 22320293 (Version 1)
Quarter: 2023Q2

REPORT INFORMATION
  Report Type: Spontaneous
  Country: US (occurrence: US)
  Receive Date: 20230515
  Receipt Date: 20230515
  Transmission Date: 20230722
  Serious: Yes (Hospitalization, Other)
  Sender: FDA-Public Use
  Company Number: US-ADVANZ PHARMA-202305003669

PATIENT

DRUGS (1)
  1. PILOCARPINE [Suspect]
     Active Substance: PILOCARPINE
     Indication: Dry mouth
     Dosage: UNK
     Route: 048

REACTIONS (7)
  - Toxicity to various agents [Recovered/Resolved]
  - Atrioventricular block complete [Recovered/Resolved]
  - Miosis [Recovered/Resolved]
  - Hyperhidrosis [Recovered/Resolved]
  - Bradycardia [Recovered/Resolved]
  - Lacrimation increased [Recovered/Resolved]
  - Hypertension [Recovered/Resolved]
